FAERS Safety Report 4318288-4 (Version None)
Quarter: 2004Q1

REPORT INFORMATION
  Report Type: 
  Country: None (occurrence: None)
  Receive Date: 20040315
  Receipt Date: 20031119
  Transmission Date: 20041129
  Serious: No
  Sender: FDA-Public Use
  Company Number: 2003187219US

PATIENT
  Age: 44 Year
  Sex: Male

DRUGS (2)
  1. BEXTRA [Suspect]
     Indication: BACK INJURY
     Dates: start: 20031117
  2. ANTIHYPERTENSIVES [Concomitant]

REACTIONS (2)
  - MOOD SWINGS [None]
  - TENSION HEADACHE [None]
